FAERS Safety Report 15802905 (Version 2)
Quarter: 2019Q1

REPORT INFORMATION
  Report Type: Spontaneous
  Country: UA (occurrence: UA)
  Receive Date: 20190109
  Receipt Date: 20190114
  Transmission Date: 20190417
  Serious: Yes (Death, Life-Threatening, Other)
  Sender: FDA-Public Use
  Company Number: UA-PFIZER INC-2019010357

PATIENT
  Age: 12 Day

DRUGS (10)
  1. AMIKACIN. [Suspect]
     Active Substance: AMIKACIN
     Indication: SEPSIS NEONATAL
     Dosage: 15 MG/KG, 1X/DAY
  2. ROMENEM [Suspect]
     Active Substance: MEROPENEM
     Indication: SEPSIS NEONATAL
     Dosage: 120 MG/KG, 1X/DAY
  3. OKTAPLEKS [Concomitant]
     Indication: HAEMOSTASIS
  4. PENTOXIFYLLINE. [Concomitant]
     Active Substance: PENTOXIFYLLINE
     Indication: COLONY STIMULATING FACTOR THERAPY
     Dosage: UNK
  5. AMPICILLIN [Suspect]
     Active Substance: AMPICILLIN
     Indication: SEPSIS NEONATAL
     Dosage: 150 MG/KG, 1X/DAY
  6. FENAMIN [MEFENAMIC ACID] [Concomitant]
     Indication: ANALGESIC THERAPY
     Dosage: 5 MG/KG, UNK
  7. PENTAGLOBIN [Concomitant]
     Active Substance: HUMAN IMMUNOGLOBULIN G
     Indication: IMMUNISATION
     Dosage: UNK
  8. FLUCONAZOLE. [Suspect]
     Active Substance: FLUCONAZOLE
     Indication: SEPSIS NEONATAL
     Dosage: 12 MG/KG, 1X/DAY
  9. METRONIDAZOL [METRONIDAZOLE] [Suspect]
     Active Substance: METRONIDAZOLE
     Indication: SEPSIS NEONATAL
     Dosage: 15 MG/KG, 1X/DAY
  10. TSEFOSULBIN [Concomitant]
     Indication: SEPSIS NEONATAL

REACTIONS (1)
  - Drug ineffective [Fatal]
